FAERS Safety Report 9215427 (Version 1)
Quarter: 2013Q2

REPORT INFORMATION
  Report Type: Report from Study
  Country: AR (occurrence: AR)
  Receive Date: 20130405
  Receipt Date: 20130405
  Transmission Date: 20140414
  Serious: Yes (Death, Other)
  Sender: FDA-Public Use
  Company Number: AR-AMGEN-ARGCT2010006163

PATIENT
  Sex: 0

DRUGS (1)
  1. DENOSUMAB [Suspect]
     Indication: PROSTATE CANCER

REACTIONS (2)
  - Death [Fatal]
  - Bone density decreased [Not Recovered/Not Resolved]
